FAERS Safety Report 9203678 (Version 6)
Quarter: 2014Q2

REPORT INFORMATION
  Report Type: Spontaneous
  Country: US (occurrence: US)
  Receive Date: 20130402
  Receipt Date: 20140415
  Transmission Date: 20141212
  Serious: No
  Sender: FDA-Public Use
  Company Number: US-PFIZER INC-2013104159

PATIENT
  Age: 47 Year
  Sex: Female

DRUGS (3)
  1. LYRICA [Suspect]
     Indication: NEURALGIA
     Dosage: 75 MG, 2X/DAY
     Route: 048
  2. CYMBALTA [Concomitant]
     Indication: DEPRESSION
     Dosage: 90 MG/DAY
  3. CYMBALTA [Concomitant]
     Indication: PAIN

REACTIONS (7)
  - Drug dispensing error [Unknown]
  - Pain [Unknown]
  - Musculoskeletal pain [Unknown]
  - Pain in extremity [Unknown]
  - Back pain [Unknown]
  - Gait disturbance [Unknown]
  - Malaise [Unknown]
